FAERS Safety Report 17483742 (Version 1)
Quarter: 2020Q1

REPORT INFORMATION
  Report Type: Report from Study
  Country: US (occurrence: US)
  Receive Date: 20200302
  Receipt Date: 20200302
  Transmission Date: 20200409
  Serious: Yes (Hospitalization, Other)
  Sender: FDA-Public Use
  Company Number: US-ROCHE-2556091

PATIENT
  Age: 61 Year
  Sex: Female
  Weight: 65.8 kg

DRUGS (2)
  1. OCREVUS [Suspect]
     Active Substance: OCRELIZUMAB
     Indication: PRIMARY PROGRESSIVE MULTIPLE SCLEROSIS
     Dosage: MOST RECENT TREATMENT WAS ON 22/AUG/2019?ANTICIPATED DATE OF TREATMENT: 27/FEB/2020
     Route: 065
     Dates: start: 2018
  2. GABAPENTIN. [Concomitant]
     Active Substance: GABAPENTIN
     Indication: NEURALGIA

REACTIONS (4)
  - Sepsis [Unknown]
  - Urinary tract infection [Unknown]
  - Hypertension [Unknown]
  - Muscular weakness [Unknown]

NARRATIVE: CASE EVENT DATE: 202001
